FAERS Safety Report 7902624-3 (Version None)
Quarter: 2011Q4

REPORT INFORMATION
  Report Type: 
  Country: None (occurrence: None)
  Receive Date: 20111108
  Receipt Date: 20111027
  Transmission Date: 20120403
  Serious: Yes (Death)
  Sender: FDA-Public Use
  Company Number: FR-ROCHE-1008059

PATIENT
  Sex: Female

DRUGS (17)
  1. RANIBIZUMAB [Suspect]
     Route: 050
     Dates: start: 20090407
  2. RANIBIZUMAB [Suspect]
     Route: 050
     Dates: start: 20091201
  3. RANIBIZUMAB [Suspect]
     Route: 050
     Dates: start: 20090109
  4. RANIBIZUMAB [Suspect]
     Route: 050
     Dates: start: 20090929
  5. RANIBIZUMAB [Suspect]
     Route: 050
     Dates: start: 20090507
  6. RANIBIZUMAB [Suspect]
     Route: 050
     Dates: start: 20090609
  7. RANIBIZUMAB [Suspect]
     Route: 050
     Dates: start: 20110126
  8. RANIBIZUMAB [Suspect]
     Route: 050
     Dates: start: 20110504
  9. RANIBIZUMAB [Suspect]
     Indication: AGE-RELATED MACULAR DEGENERATION
     Route: 050
     Dates: start: 20081031
  10. RANIBIZUMAB [Suspect]
     Route: 050
     Dates: start: 20091006
  11. RANIBIZUMAB [Suspect]
     Route: 050
     Dates: start: 20091110
  12. RANIBIZUMAB [Suspect]
     Route: 050
     Dates: start: 20081212
  13. RANIBIZUMAB [Suspect]
     Route: 050
     Dates: start: 20091215
  14. RANIBIZUMAB [Suspect]
     Route: 050
     Dates: start: 20091103
  15. RANIBIZUMAB [Suspect]
     Route: 050
     Dates: start: 20110302
  16. RANIBIZUMAB [Suspect]
     Route: 050
     Dates: start: 20110629
  17. RANIBIZUMAB [Suspect]
     Route: 050
     Dates: start: 20110831

REACTIONS (3)
  - VISUAL ACUITY REDUCED [None]
  - DEATH [None]
  - INAPPROPRIATE SCHEDULE OF DRUG ADMINISTRATION [None]
